FAERS Safety Report 4441926-2 (Version None)
Quarter: 2004Q3

REPORT INFORMATION
  Report Type: 
  Country: None (occurrence: None)
  Receive Date: 20040901
  Receipt Date: 20040819
  Transmission Date: 20050211
  Serious: Yes (Life-Threatening, Hospitalization)
  Sender: FDA-Public Use
  Company Number: 2004222217DE

PATIENT
  Age: 61 Year
  Sex: Female
  Weight: 100 kg

DRUGS (8)
  1. BEXTRA [Suspect]
     Indication: ARTHRALGIA
     Dosage: 20 MG, QD, ORAL
     Route: 048
     Dates: start: 20040514, end: 20040521
  2. FRAGMIN [Suspect]
     Dosage: SUBCUTANEOUS
     Route: 058
     Dates: start: 20040501
  3. AMPLITAL (AMPICILLIN) CAPSULE [Suspect]
     Indication: INFLAMMATION
     Dates: start: 20040519, end: 20040501
  4. VALORON N [Concomitant]
  5. TRAMADOL HCL [Concomitant]
  6. NOVAMINSULFON-RATIOPHARM (METAMIZOLE SODIUM) [Concomitant]
  7. XYLONEST (PRILOCAINE HYDROCHLORIDE) [Concomitant]
  8. DURAGESIC [Concomitant]

REACTIONS (21)
  - ALVEOLITIS [None]
  - ARTHRALGIA [None]
  - BLISTER [None]
  - BREAST SWELLING [None]
  - CHEST PAIN [None]
  - DRUG ERUPTION [None]
  - ELECTROLYTE IMBALANCE [None]
  - ERYSIPELAS [None]
  - ERYTHEMA [None]
  - EXANTHEM [None]
  - GENERAL PHYSICAL HEALTH DETERIORATION [None]
  - NEURITIS [None]
  - OEDEMA [None]
  - OEDEMA PERIPHERAL [None]
  - OVERDOSE [None]
  - PRURITUS [None]
  - RENAL FAILURE [None]
  - RESPIRATORY DISORDER [None]
  - SKIN WARM [None]
  - THERAPY NON-RESPONDER [None]
  - THROMBOCYTOPENIA [None]
